FAERS Safety Report 9520678 (Version 1)
Quarter: 2013Q3

REPORT INFORMATION
  Report Type: Spontaneous
  Country: US (occurrence: US)
  Receive Date: 20130913
  Receipt Date: 20130913
  Transmission Date: 20140515
  Serious: No
  Sender: FDA-Public Use
  Company Number: US-B.I. PHARMACEUTICALS,INC./RIDGEFIELD-2013-BI-27361BP

PATIENT
  Sex: Male

DRUGS (1)
  1. FLOMAX CAPSULES [Suspect]
     Indication: PROSTATOMEGALY
     Dosage: 0.4 MG
     Route: 048
     Dates: start: 20130828

REACTIONS (1)
  - Nasopharyngitis [Not Recovered/Not Resolved]
